FAERS Safety Report 5645736-X (Version None)
Quarter: 2008Q1

REPORT INFORMATION
  Report Type: 
  Country: None (occurrence: None)
  Receive Date: 20080229
  Receipt Date: 20080219
  Transmission Date: 20080703
  Serious: Yes (Hospitalization)
  Sender: FDA-Public Use
  Company Number: GB-ABBOTT-08P-167-0438948-00

PATIENT
  Age: 24 Month
  Sex: Male

DRUGS (1)
  1. VALPROATE SODIUM [Suspect]
     Indication: EPILEPSY
     Dosage: INCREASING REGIMEN, MAXIMUM DAILY DOSE OF 25MG/KG)
     Route: 065

REACTIONS (8)
  - AMMONIA INCREASED [None]
  - BLOOD LACTATE DEHYDROGENASE ABNORMAL [None]
  - COAGULATION TIME PROLONGED [None]
  - DEPRESSED LEVEL OF CONSCIOUSNESS [None]
  - ENCEPHALOPATHY [None]
  - HEPATIC FAILURE [None]
  - LIVER FUNCTION TEST ABNORMAL [None]
  - VOMITING [None]
